FAERS Safety Report 5897327-3 (Version None)
Quarter: 2008Q3

REPORT INFORMATION
  Report Type: 
  Country: None (occurrence: None)
  Receive Date: 20080911
  Receipt Date: 20070829
  Transmission Date: 20090109
  Serious: Yes (Other)
  Sender: FDA-Public Use
  Company Number: 2007072712

PATIENT
  Age: 4 Year
  Sex: Female

DRUGS (1)
  1. ZYRTEC [Suspect]

REACTIONS (1)
  - HALLUCINATION [None]
